FAERS Safety Report 15831843 (Version 1)
Quarter: 2018Q4

REPORT INFORMATION
  Report Type: Spontaneous
  Country: US (occurrence: US)
  Receive Date: 20181219
  Receipt Date: 20181219
  Transmission Date: 20190205
  Serious: Yes (Hospitalization)
  Sender: FDA-Public Use
  Company Number: None

PATIENT
  Age: 59 Year
  Sex: Female
  Weight: 68.49 kg

DRUGS (1)
  1. YESCARTA [Suspect]
     Active Substance: AXICABTAGENE CILOLEUCEL
     Indication: DIFFUSE LARGE B-CELL LYMPHOMA
     Dosage: ?          OTHER DOSE:2X10^6 PER KG;?
     Route: 042
     Dates: start: 20181112

REACTIONS (4)
  - Aphasia [None]
  - Neurotoxicity [None]
  - Cytokine release syndrome [None]
  - Serum ferritin increased [None]

NARRATIVE: CASE EVENT DATE: 20181112
